FAERS Safety Report 6367055-9 (Version None)
Quarter: 2009Q3

REPORT INFORMATION
  Report Type: 
  Country: None (occurrence: None)
  Receive Date: 20090921
  Receipt Date: 20090917
  Transmission Date: 20100115
  Serious: Yes (Other)
  Sender: FDA-Public Use
  Company Number: AU-ROXANE LABORATORIES, INC.-2009-RO-00954RO

PATIENT
  Age: 63 Year
  Sex: Male

DRUGS (6)
  1. AZATHIOPRINE [Suspect]
     Indication: COLITIS ULCERATIVE
     Dosage: 25 MG
  2. AZATHIOPRINE [Suspect]
     Dosage: 50 MG
  3. MERCAPTOPURINE [Suspect]
     Indication: COLITIS ULCERATIVE
     Dosage: 25 MG
  4. MERCAPTOPURINE [Suspect]
     Dosage: 75 MG
  5. PREDNISOLONE [Suspect]
     Indication: CONDITION AGGRAVATED
     Route: 048
  6. 5-AMINOSALICYLIC ACID [Suspect]

REACTIONS (2)
  - FATIGUE [None]
  - LETHARGY [None]
